FAERS Safety Report 6205380-2 (Version None)
Quarter: 2009Q2

REPORT INFORMATION
  Report Type: 
  Country: None (occurrence: None)
  Receive Date: 20090527
  Receipt Date: 20090317
  Transmission Date: 20091009
  Serious: No
  Sender: FDA-Public Use
  Company Number: US-ABBOTT-09P-163-0563824-00

PATIENT
  Sex: Male
  Weight: 76.272 kg

DRUGS (6)
  1. SIMCOR [Suspect]
     Indication: BLOOD TRIGLYCERIDES INCREASED
     Dosage: 500/20MG QHS BID-1 IN AM AND 1 IN PM
     Route: 048
     Dates: start: 20080501, end: 20080501
  2. SIMCOR [Suspect]
     Dosage: 500/20MG QHS DAILY
     Route: 048
     Dates: start: 20080501
  3. PRILOSEC [Concomitant]
     Indication: GASTROOESOPHAGEAL REFLUX DISEASE
  4. CLARITIN [Concomitant]
     Indication: HYPERSENSITIVITY
  5. VITAMINS [Concomitant]
     Indication: DRUG USE FOR UNKNOWN INDICATION
     Dosage: DAILY
  6. COD LIVER OIL [Concomitant]
     Indication: DRUG USE FOR UNKNOWN INDICATION
     Dosage: DAILY

REACTIONS (2)
  - FLUSHING [None]
  - RASH [None]
